FAERS Safety Report 4322205-0 (Version None)
Quarter: 2004Q1

REPORT INFORMATION
  Report Type: 
  Country: None (occurrence: None)
  Receive Date: 20040319
  Receipt Date: 20040315
  Transmission Date: 20041129
  Serious: Yes (Hospitalization)
  Sender: FDA-Public Use
  Company Number: 2004UW04876

PATIENT
  Age: 57 Year
  Sex: Male
  Weight: 94 kg

DRUGS (7)
  1. PROPOFOL [Suspect]
     Dosage: NI
     Dates: start: 20040210
  2. COUMADIN [Suspect]
     Dosage: NI
  3. ATENOLOL [Suspect]
  4. PROPAFENONE HYDROCHLORIDE [Suspect]
     Dosage: 300 MG; PO
     Route: 048
  5. MIDAZOLAM HCL [Suspect]
  6. METOCLOPRAMIDE [Concomitant]
  7. FUROSEMIDE [Concomitant]

REACTIONS (2)
  - HYPOTENSION [None]
  - RENAL FAILURE [None]
